FAERS Safety Report 4498583-9 (Version None)
Quarter: 2004Q4

REPORT INFORMATION
  Report Type: 
  Country: None (occurrence: None)
  Receive Date: 20041026
  Receipt Date: 20041026
  Transmission Date: 20050328
  Serious: Yes (Hospitalization)
  Sender: FDA-Public Use
  Company Number: None

PATIENT
  Age: 66 Year
  Sex: Male
  Weight: 94.3482 kg

DRUGS (11)
  1. SILDENAFIL 40 MG [Suspect]
     Indication: PULMONARY HYPERTENSION
     Dosage: 40 MG TID PO
     Route: 048
     Dates: start: 20040126
  2. NIFEDICAL [Concomitant]
  3. TRACLEER [Concomitant]
  4. LASIX [Concomitant]
  5. LEVOTHYROID [Concomitant]
  6. LOVASTATIN [Concomitant]
  7. DIOVAN [Concomitant]
  8. COUMADIN [Concomitant]
  9. POTASSIUM [Concomitant]
  10. METOPROLOL [Concomitant]
  11. INDOCIN [Concomitant]

REACTIONS (2)
  - CHEST DISCOMFORT [None]
  - HEART RATE INCREASED [None]
